FAERS Safety Report 19381616 (Version 10)
Quarter: 2021Q4

REPORT INFORMATION
  Report Type: Spontaneous
  Country: JP (occurrence: JP)
  Receive Date: 20210607
  Receipt Date: 20211221
  Transmission Date: 20220304
  Serious: Yes (Hospitalization)
  Sender: FDA-Public Use
  Company Number: JP-JNJFOC-20210435401

PATIENT
  Age: 53 Year
  Sex: Male

DRUGS (45)
  1. RISPERDAL [Suspect]
     Active Substance: RISPERIDONE
     Indication: Persistent depressive disorder
     Dosage: DOSE UNKNOWN
     Route: 048
  2. RISPERDAL [Suspect]
     Active Substance: RISPERIDONE
     Dosage: 6-8 MG PER DAY
     Route: 048
     Dates: start: 2003
  3. RISPERDAL [Suspect]
     Active Substance: RISPERIDONE
     Dosage: IN THE MORNING, AT BEDTIME
     Route: 048
     Dates: start: 2003, end: 2003
  4. RISPERDAL [Suspect]
     Active Substance: RISPERIDONE
     Route: 048
     Dates: start: 201911, end: 2019
  5. RISPERDAL [Suspect]
     Active Substance: RISPERIDONE
     Route: 048
     Dates: start: 2019, end: 2019
  6. RISPERDAL [Suspect]
     Active Substance: RISPERIDONE
     Route: 048
     Dates: start: 2019, end: 2019
  7. RISPERDAL [Suspect]
     Active Substance: RISPERIDONE
     Route: 048
     Dates: start: 2019, end: 2019
  8. RISPERDAL [Suspect]
     Active Substance: RISPERIDONE
     Dosage: UP TO 4 MG DAILY
     Route: 048
     Dates: start: 201912
  9. RISPERDAL [Suspect]
     Active Substance: RISPERIDONE
     Dosage: 4 TIMES PER DAY, P.R.N
     Route: 048
     Dates: start: 202004
  10. RISPERDAL [Suspect]
     Active Substance: RISPERIDONE
     Dosage: DOSE UNKNOWN
     Route: 048
     Dates: start: 202007
  11. RISPERDAL [Suspect]
     Active Substance: RISPERIDONE
     Route: 048
  12. RISPERDAL [Suspect]
     Active Substance: RISPERIDONE
     Dosage: DOSE UNKNOWN
     Route: 048
  13. RISPERIDONE [Suspect]
     Active Substance: RISPERIDONE
     Indication: Product used for unknown indication
     Route: 048
     Dates: start: 2003
  14. RISPERIDONE [Suspect]
     Active Substance: RISPERIDONE
     Dosage: DOSE UNKNOWN
     Route: 048
     Dates: start: 2019
  15. RISPERIDONE [Suspect]
     Active Substance: RISPERIDONE
     Route: 048
  16. RISPERIDONE [Suspect]
     Active Substance: RISPERIDONE
     Dosage: IN THE MORNING,AT BEDTIME
     Route: 048
  17. RISPERIDONE [Suspect]
     Active Substance: RISPERIDONE
     Route: 048
  18. RISPERIDONE [Suspect]
     Active Substance: RISPERIDONE
     Dosage: IN THE MORNING AND EVENING
     Route: 048
  19. RISPERIDONE [Suspect]
     Active Substance: RISPERIDONE
     Dosage: IN THE AFTERNOON
     Route: 048
     Dates: start: 20210626
  20. RISPERIDONE [Suspect]
     Active Substance: RISPERIDONE
     Dosage: IN THE MORNING, IN THE AFTERNOON, AT BEDTIME
     Route: 048
     Dates: start: 2021, end: 2021
  21. RISPERIDONE [Suspect]
     Active Substance: RISPERIDONE
     Dosage: IN THE MORNING,IN THE DAYTIME,P.R.N
     Route: 048
     Dates: start: 2021
  22. RISPERIDONE [Suspect]
     Active Substance: RISPERIDONE
     Dosage: IN THE MORNING,IN THE DAYTIME,P.R.N
     Route: 048
  23. RISPERIDONE [Suspect]
     Active Substance: RISPERIDONE
     Route: 048
     Dates: end: 20211121
  24. RISPERIDONE [Suspect]
     Active Substance: RISPERIDONE
     Route: 048
     Dates: start: 20211122, end: 20211122
  25. RISPERIDONE [Suspect]
     Active Substance: RISPERIDONE
     Route: 048
     Dates: start: 2021
  26. PEROSPIRONE HYDROCHLORIDE [Suspect]
     Active Substance: PEROSPIRONE HYDROCHLORIDE
     Indication: Product used for unknown indication
     Route: 048
     Dates: start: 201911, end: 201912
  27. PEROSPIRONE HYDROCHLORIDE [Suspect]
     Active Substance: PEROSPIRONE HYDROCHLORIDE
     Route: 048
     Dates: start: 201912
  28. PEROSPIRONE HYDROCHLORIDE [Suspect]
     Active Substance: PEROSPIRONE HYDROCHLORIDE
     Route: 048
  29. PEROSPIRONE HYDROCHLORIDE [Suspect]
     Active Substance: PEROSPIRONE HYDROCHLORIDE
     Dosage: P.R.N, UP TO 4 TIMES DAILY
     Route: 048
  30. PEROSPIRONE HYDROCHLORIDE [Suspect]
     Active Substance: PEROSPIRONE HYDROCHLORIDE
     Dosage: P.R.N, UP TO 4 TIMES DAILY
     Route: 048
     Dates: start: 202106, end: 2021
  31. PEROSPIRONE HYDROCHLORIDE [Suspect]
     Active Substance: PEROSPIRONE HYDROCHLORIDE
     Route: 048
     Dates: start: 2021
  32. PEROSPIRONE HYDROCHLORIDE [Suspect]
     Active Substance: PEROSPIRONE HYDROCHLORIDE
     Dosage: UP TO 4 TIMES A DAY, P.R.N
     Route: 048
     Dates: end: 20211121
  33. PEROSPIRONE HYDROCHLORIDE [Suspect]
     Active Substance: PEROSPIRONE HYDROCHLORIDE
     Route: 048
     Dates: start: 20211122, end: 20211209
  34. PEROSPIRONE HYDROCHLORIDE [Suspect]
     Active Substance: PEROSPIRONE HYDROCHLORIDE
     Route: 048
     Dates: start: 20211210
  35. CYMBALTA [Concomitant]
     Active Substance: DULOXETINE HYDROCHLORIDE
     Route: 048
     Dates: start: 201911, end: 2019
  36. CYMBALTA [Concomitant]
     Active Substance: DULOXETINE HYDROCHLORIDE
     Route: 048
     Dates: start: 2019, end: 2019
  37. CYMBALTA [Concomitant]
     Active Substance: DULOXETINE HYDROCHLORIDE
     Route: 048
     Dates: start: 2019
  38. CYMBALTA [Concomitant]
     Active Substance: DULOXETINE HYDROCHLORIDE
     Dosage: DOSE UNKNOWN
     Route: 048
  39. LORAZEPAM [Concomitant]
     Active Substance: LORAZEPAM
     Dosage: 3 TIMES PER DAY, P.R.N
     Route: 048
  40. DULOXETINE HYDROCHLORIDE [Concomitant]
     Active Substance: DULOXETINE HYDROCHLORIDE
     Dosage: DOSE UNKNOWN
     Route: 048
  41. PEROSPIRONE HYDROCHLORIDE HYDRATE [Concomitant]
     Active Substance: PEROSPIRONE HYDROCHLORIDE HYDRATE
     Indication: Persistent depressive disorder
     Route: 048
  42. LITHIUM CARBONATE [Concomitant]
     Active Substance: LITHIUM CARBONATE
     Indication: Persistent depressive disorder
     Route: 048
  43. ETHYL LOFLAZEPATE [Concomitant]
     Active Substance: ETHYL LOFLAZEPATE
     Indication: Myoclonus
     Dosage: DOSE UNKNOWN
     Route: 048
     Dates: start: 2021
  44. ETHYL LOFLAZEPATE [Concomitant]
     Active Substance: ETHYL LOFLAZEPATE
     Dosage: DOSE UNKNOWN
     Route: 048
  45. RIVOTRIL [Concomitant]
     Active Substance: CLONAZEPAM
     Indication: Myoclonus
     Dosage: DOSE UNKNOWN
     Route: 048
     Dates: start: 2021

REACTIONS (16)
  - Tardive dyskinesia [Recovering/Resolving]
  - Anxiety [Not Recovered/Not Resolved]
  - Irritability [Not Recovered/Not Resolved]
  - Parkinsonism [Recovered/Resolved]
  - Bradykinesia [Recovered/Resolved]
  - Logorrhoea [Recovered/Resolved]
  - Orthostatic hypotension [Unknown]
  - Dyskinesia [Unknown]
  - Dizziness postural [Unknown]
  - Akathisia [Recovered/Resolved]
  - Pleurothotonus [Unknown]
  - Salivary hypersecretion [Not Recovered/Not Resolved]
  - Stupor [Not Recovered/Not Resolved]
  - Inappropriate schedule of product administration [Unknown]
  - Product use in unapproved indication [Unknown]
  - Off label use [Unknown]

NARRATIVE: CASE EVENT DATE: 20030101
